FAERS Safety Report 6743651 (Version 2)
Quarter: 2014Q3

REPORT INFORMATION
  Report Type: Spontaneous
  Country: US (occurrence: None)
  Receive Date: 20080818
  Receipt Date: 20140820
  Transmission Date: 20150326
  Serious: Yes (Other)
  Sender: FDA-Public Use
  Company Number: 2008S1007793

PATIENT
  Age: 69 Year
  Sex: Female
  Weight: 47 kg

DRUGS (8)
  1. BROMPHENIRAMINE-PSEUDOEPHEDRINE [Concomitant]
  2. CALCIUM [Concomitant]
     Active Substance: CALCIUM
  3. ASTELIN [Concomitant]
     Active Substance: AZELASTINE HYDROCHLORIDE
  4. NABUMETONE. [Concomitant]
     Active Substance: NABUMETONE
  5. FLEET NOS [Suspect]
     Active Substance: BISACODYL OR GLYCERIN OR MINERAL OIL OR SODIUM PHOSPHATE, DIBASIC\SODIUM PHOSPHATE, MONOBASIC
     Indication: COLONOSCOPY
     Dosage: RECTAL
  6. PHOSPHO-SODA [Suspect]
     Active Substance: SODIUM PHOSPHATE, DIBASIC\SODIUM PHOSPHATE, MONOBASIC
     Indication: COLONOSCOPY
     Dosage: PO
     Route: 048
     Dates: start: 20070515, end: 20070515
  7. FOSAMAX [Concomitant]
     Active Substance: ALENDRONATE SODIUM
  8. ELESTAT [Concomitant]
     Active Substance: EPINASTINE HYDROCHLORIDE

REACTIONS (22)
  - Kidney fibrosis [None]
  - Fatigue [None]
  - Nephropathy [None]
  - Tubulointerstitial nephritis [None]
  - Blood parathyroid hormone increased [None]
  - Renal failure chronic [None]
  - Nephrogenic anaemia [None]
  - Lipids abnormal [None]
  - Mesenteric artery stenosis [None]
  - Hypertension [None]
  - Renal tubular disorder [None]
  - Renal artery stenosis [None]
  - Crystal nephropathy [None]
  - Lethargy [None]
  - Oliguria [None]
  - Macular degeneration [None]
  - Renal failure acute [None]
  - Influenza like illness [None]
  - Acute phosphate nephropathy [None]
  - Haemolysis [None]
  - Peripheral swelling [None]
  - Diarrhoea [None]

NARRATIVE: CASE EVENT DATE: 20070830
